FAERS Safety Report 5243443-9 (Version None)
Quarter: 2007Q1

REPORT INFORMATION
  Report Type: 
  Country: None (occurrence: None)
  Receive Date: 20070215
  Receipt Date: 20070205
  Transmission Date: 20070707
  Serious: Yes (Hospitalization)
  Sender: FDA-Public Use
  Company Number: 236105

PATIENT
  Age: 49 Year
  Sex: Male
  Weight: 94 kg

DRUGS (6)
  1. XOLAIR [Suspect]
     Indication: ASTHMA
     Dosage: 300 MG, SINGLE, SUBCUTANEOUS
     Route: 058
     Dates: start: 20060523, end: 20060523
  2. PREDNISONE [Concomitant]
  3. FORADIL [Concomitant]
  4. FLUTICASONE PROPIONATE [Concomitant]
  5. SOLIAN (AMISULPRIDE) [Concomitant]
  6. PAROXETINE (PAROXETINE HYDROCHLORIDE) [Concomitant]

REACTIONS (2)
  - DRUG ERUPTION [None]
  - RASH PRURITIC [None]
